FAERS Safety Report 5705442-X (Version None)
Quarter: 2008Q2

REPORT INFORMATION
  Report Type: 
  Country: None (occurrence: None)
  Receive Date: 20080408
  Receipt Date: 20080318
  Transmission Date: 20081010
  Serious: Yes (Other)
  Sender: FDA-Public Use
  Company Number: BR-DEXPHARM-20080226

PATIENT
  Age: 13 Year
  Sex: Male

DRUGS (1)
  1. DICLOFENAC SODIUM [Suspect]
     Dosage: ^1 TABLET^ (50 MG MILLGRAM(S)) ORAL
     Route: 048

REACTIONS (1)
  - GRAND MAL CONVULSION [None]
